FAERS Safety Report 9543951 (Version 1)
Quarter: 2013Q3

REPORT INFORMATION
  Report Type: Spontaneous
  Country: GB (occurrence: GB)
  Receive Date: 20130923
  Receipt Date: 20130923
  Transmission Date: 20140515
  Serious: Yes (Other)
  Sender: FDA-Public Use
  Company Number: GB-009507513-1211GBR004625

PATIENT
  Sex: 0

DRUGS (3)
  1. SINEMET [Suspect]
     Dosage: TWO TABLETS AT 6 AM AND ALSO TOOK HALF A TABLET THREE TIMES A DAY
     Route: 048
  2. SINEMET [Suspect]
     Dosage: THE USUSL DOSE AT 3PM AND 9PM
     Route: 048
     Dates: start: 20121106
  3. SINEMET [Suspect]
     Dosage: 2 DF, UNK
     Route: 048
     Dates: start: 20121107

REACTIONS (1)
  - Surgery [Unknown]
